FAERS Safety Report 5964391-2 (Version None)
Quarter: 2008Q4

REPORT INFORMATION
  Report Type: 
  Country: None (occurrence: None)
  Receive Date: 20081124
  Receipt Date: 20081006
  Transmission Date: 20090506
  Serious: No
  Sender: FDA-Public Use
  Company Number: US-AMGEN-US311689

PATIENT
  Sex: Female

DRUGS (1)
  1. NPLATE [Suspect]
     Indication: IDIOPATHIC THROMBOCYTOPENIC PURPURA
     Route: 065
     Dates: start: 20080929

REACTIONS (7)
  - ABDOMINAL PAIN [None]
  - ARTHRALGIA [None]
  - BACK PAIN [None]
  - FEELING HOT [None]
  - GASTROENTERITIS NOROVIRUS [None]
  - HEADACHE [None]
  - INFLUENZA LIKE ILLNESS [None]
